FAERS Safety Report 14273005 (Version 2)
Quarter: 2022Q1

REPORT INFORMATION
  Report Type: Spontaneous
  Country: DE (occurrence: DE)
  Receive Date: 20171211
  Receipt Date: 20220202
  Transmission Date: 20220423
  Serious: Yes (Other)
  Sender: FDA-Public Use
  Company Number: DE-BRISTOL-MYERS SQUIBB COMPANY-BMS-2016-070005

PATIENT
  Age: 39 Year
  Sex: Female
  Weight: 120 kg

DRUGS (3)
  1. ABILIFY [Suspect]
     Active Substance: ARIPIPRAZOLE
     Indication: Bipolar disorder
     Dosage: 10 MG, QD (EVERYDAY);DAILY DOSE: 10 MG MILLIGRAM(S) EVERY DAY
     Route: 048
     Dates: start: 20150605, end: 20160226
  2. LEVOTHYROXINE SODIUM [Suspect]
     Active Substance: LEVOTHYROXINE SODIUM
     Indication: Hypothyroidism
     Dosage: 275 ?G, QD;DAILY DOSE: 275 ?G MICROGRAM(S) EVERY DAY
     Route: 048
  3. FOLIC ACID [Suspect]
     Active Substance: FOLIC ACID
     Indication: Prophylaxis of neural tube defect
     Dosage: 0.4 MG, QD (EVERY DAY);DAILY DOSE: 0.4 MG MILLIGRAM(S) EVERY DAY
     Route: 048

REACTIONS (5)
  - Pre-eclampsia [Unknown]
  - Gestational diabetes [Recovered/Resolved]
  - Caesarean section [Unknown]
  - Maternal exposure during pregnancy [Unknown]
  - Product use issue [Unknown]

NARRATIVE: CASE EVENT DATE: 20160226
